FAERS Safety Report 8292834-0 (Version None)
Quarter: 2012Q2

REPORT INFORMATION
  Report Type: 
  Country: None (occurrence: None)
  Receive Date: 20120417
  Receipt Date: 20110815
  Transmission Date: 20120825
  Serious: No
  Sender: FDA-Public Use
  Company Number: US-ASTRAZENECA-2011SE29865

PATIENT
  Age: 54 Year
  Sex: Female

DRUGS (3)
  1. NEXIUM [Suspect]
     Route: 048
  2. SINGULAIR [Concomitant]
  3. PRISTIQ [Concomitant]

REACTIONS (5)
  - CARPAL TUNNEL SYNDROME [None]
  - EATING DISORDER [None]
  - BRONCHITIS [None]
  - GASTROINTESTINAL DISORDER [None]
  - INSOMNIA [None]
